FAERS Safety Report 12641243 (Version 2)
Quarter: 2016Q4

REPORT INFORMATION
  Report Type: Spontaneous
  Country: US (occurrence: US)
  Receive Date: 20160810
  Receipt Date: 20161004
  Transmission Date: 20170207
  Serious: No
  Sender: FDA-Public Use
  Company Number: US-PFIZER INC-2016367642

PATIENT
  Age: 62 Year
  Sex: Male

DRUGS (8)
  1. TRAZODONE [Concomitant]
     Active Substance: TRAZODONE HYDROCHLORIDE
     Dosage: 50 MG, 1X/DAY (10 YRS AGO)
  2. LORATADINE. [Concomitant]
     Active Substance: LORATADINE
     Dosage: 10 MG, 1X/DAY (10 YEARS AGO)
  3. GABAPENTIN. [Suspect]
     Active Substance: GABAPENTIN
     Indication: HERPES ZOSTER
     Dosage: 600 MG, 1X/DAY (FOR YEARS)
  4. PAROXETINE. [Concomitant]
     Active Substance: PAROXETINE
     Dosage: 40 MG, 1X/DAY (8 YRS AGO)
  5. NASACORT [Concomitant]
     Active Substance: TRIAMCINOLONE ACETONIDE
     Dosage: 1 SPRAY IN EACH NOSTRIL, 1X/DAY (10 YRS AGO)
     Route: 045
  6. PANTOPRAZOLE [Concomitant]
     Active Substance: PANTOPRAZOLE SODIUM
     Dosage: 40 MG, 1X/DAY (8 YRS AGO)
  7. GUAIFENESIN. [Concomitant]
     Active Substance: GUAIFENESIN
     Dosage: 660 MG, 4X/DAY (2 MORN/ 2 EVE, 10 YRS AGO)
  8. GABAPENTIN. [Suspect]
     Active Substance: GABAPENTIN
     Indication: NEURALGIA
     Dosage: UNK, DAILY (1, 2 THEN 3)
     Dates: start: 2010

REACTIONS (4)
  - Pain in extremity [Not Recovered/Not Resolved]
  - Musculoskeletal chest pain [Not Recovered/Not Resolved]
  - Discomfort [Unknown]
  - Drug ineffective [Not Recovered/Not Resolved]

NARRATIVE: CASE EVENT DATE: 2010
